FAERS Safety Report 17660683 (Version 1)
Quarter: 2020Q2

REPORT INFORMATION
  Report Type: Spontaneous
  Country: US (occurrence: US)
  Receive Date: 20200410
  Receipt Date: 20200410
  Transmission Date: 20200713
  Serious: Yes (Other)
  Sender: FDA-Public Use
  Company Number: None

PATIENT
  Age: 61 Year
  Sex: Female
  Weight: 98.1 kg

DRUGS (75)
  1. GAMMAGARD [Suspect]
     Active Substance: HUMAN IMMUNOGLOBULIN G
  2. METOPROLOL. [Concomitant]
     Active Substance: METOPROLOL
  3. RESTASIS [Concomitant]
     Active Substance: CYCLOSPORINE
  4. FISH OIL [Concomitant]
     Active Substance: FISH OIL
  5. GLUCOSAMINE CHONDROITIN [Concomitant]
     Active Substance: CHONDROITIN SULFATE (BOVINE)\GLUCOSAMINE HYDROCHLORIDE
  6. AMERGE [Concomitant]
     Active Substance: NARATRIPTAN HYDROCHLORIDE
  7. ZOFRAN [Concomitant]
     Active Substance: ONDANSETRON HYDROCHLORIDE
  8. VOLTAREN [Concomitant]
     Active Substance: DICLOFENAC SODIUM
  9. LIPITOR [Concomitant]
     Active Substance: ATORVASTATIN CALCIUM
  10. TIZANIDINE. [Concomitant]
     Active Substance: TIZANIDINE
  11. REQUIP [Concomitant]
     Active Substance: ROPINIROLE HYDROCHLORIDE
  12. BENTYL [Concomitant]
     Active Substance: DICYCLOMINE HYDROCHLORIDE
  13. COLACE [Concomitant]
     Active Substance: DOCUSATE SODIUM
  14. DESONIDE OINTMENT [Concomitant]
  15. VITAMIN C [Concomitant]
     Active Substance: ASCORBIC ACID
  16. LACTAID [Concomitant]
     Active Substance: LACTASE
  17. PROBIOTIC [Concomitant]
     Active Substance: PROBIOTICS NOS
  18. VITAMIN B6 [Concomitant]
     Active Substance: PYRIDOXINE HYDROCHLORIDE
  19. XARELTO [Concomitant]
     Active Substance: RIVAROXABAN
  20. ATROVENT [Concomitant]
     Active Substance: IPRATROPIUM BROMIDE
  21. BUMETANIDE. [Concomitant]
     Active Substance: BUMETANIDE
  22. IMODIUM [Concomitant]
     Active Substance: LOPERAMIDE HYDROCHLORIDE
  23. SINGULAIR [Concomitant]
     Active Substance: MONTELUKAST SODIUM
  24. VITAMIN D3 [Concomitant]
     Active Substance: CHOLECALCIFEROL
  25. ESTROVEN [Concomitant]
     Active Substance: DIETARY SUPPLEMENT
  26. FIBERCON [Concomitant]
     Active Substance: CALCIUM POLYCARBOPHIL
  27. MAGIC MOUTHWASH [Concomitant]
     Active Substance: DIPHENHYDRAMINE HYDROCHLORIDE\LIDOCAINE HYDROCHLORIDE\NYSTATIN
  28. CEFALY [Concomitant]
     Active Substance: DEVICE
  29. TYLENOL [Concomitant]
     Active Substance: ACETAMINOPHEN
  30. MAGNESIUM [Concomitant]
     Active Substance: MAGNESIUM
  31. CLONAZEPAM. [Concomitant]
     Active Substance: CLONAZEPAM
  32. LIDOCAINE PATCH [Concomitant]
     Active Substance: LIDOCAINE
  33. COMPIUNDED  PAIN CREAM [Concomitant]
  34. BENADRYL [Concomitant]
     Active Substance: DIPHENHYDRAMINE HYDROCHLORIDE
  35. PEPPERMINT OIL [Concomitant]
     Active Substance: PEPPERMINT OIL
  36. TRAZODONE [Concomitant]
     Active Substance: TRAZODONE HYDROCHLORIDE
  37. SENNOSIDES. [Concomitant]
     Active Substance: SENNOSIDES
  38. MUCINEX [Concomitant]
     Active Substance: GUAIFENESIN
  39. MODAFINIL. [Concomitant]
     Active Substance: MODAFINIL
  40. SPIRIVA [Concomitant]
     Active Substance: TIOTROPIUM BROMIDE MONOHYDRATE
  41. MIRALAX [Concomitant]
     Active Substance: POLYETHYLENE GLYCOL 3350
  42. RHOFADE CREAM [Concomitant]
  43. RESTAVIN [Concomitant]
  44. ARAVA [Concomitant]
     Active Substance: LEFLUNOMIDE
  45. LUNESTA [Concomitant]
     Active Substance: ESZOPICLONE
  46. SUMATRIPTAN. [Concomitant]
     Active Substance: SUMATRIPTAN
  47. SPIRONOLACTONE. [Concomitant]
     Active Substance: SPIRONOLACTONE
  48. NYSTATIN. [Concomitant]
     Active Substance: NYSTATIN
  49. VALTREX [Concomitant]
     Active Substance: VALACYCLOVIR HYDROCHLORIDE
  50. METHADONE [Concomitant]
     Active Substance: METHADONE HYDROCHLORIDE
  51. XIIDRA [Concomitant]
     Active Substance: LIFITEGRAST
  52. SAVELLA [Concomitant]
     Active Substance: MILNACIPRAN HYDROCHLORIDE
  53. LIDOCAINE LOTION [Concomitant]
  54. PHENERGAN [Concomitant]
     Active Substance: PROMETHAZINE HYDROCHLORIDE
  55. CITRACAL + D3 [Concomitant]
  56. PEPCID [Concomitant]
     Active Substance: FAMOTIDINE
  57. DEXILANT [Concomitant]
     Active Substance: DEXLANSOPRAZOLE
  58. QVAR [Concomitant]
     Active Substance: BECLOMETHASONE DIPROPIONATE
  59. FLONASE [Concomitant]
     Active Substance: FLUTICASONE PROPIONATE
  60. LIDOCAINE VISCOUS [Concomitant]
     Active Substance: LIDOCAINE HYDROCHLORIDE
  61. CHOLESTYRAMINE POWDER [Concomitant]
     Active Substance: CHOLESTYRAMINE
  62. HIZENTRA [Suspect]
     Active Substance: HUMAN IMMUNOGLOBULIN G
     Indication: IMMUNODEFICIENCY COMMON VARIABLE
     Dosage: ?          QUANTITY:50 MLS.;OTHER FREQUENCY:ONCE WEEKLY;?
     Route: 058
     Dates: start: 20200315, end: 20200329
  63. CPAP [Concomitant]
     Active Substance: DEVICE
  64. TYLENOL WITH CODEINE [Concomitant]
     Active Substance: ACETAMINOPHEN\CODEINE PHOSPHATE
  65. FIBROFREE [Concomitant]
  66. MULTIVITAMINS [Concomitant]
     Active Substance: VITAMINS
  67. COQ10 [Concomitant]
     Active Substance: UBIDECARENONE
  68. DIHYDROERGOTAMINE CASPUKES AND NASAL SPRAY [Concomitant]
  69. MELATONIN [Concomitant]
     Active Substance: MELATONIN
  70. VITAMIN E [Concomitant]
     Active Substance: .ALPHA.-TOCOPHEROL
  71. ALBUTEROL NEBULIZIER AND INHALER [Concomitant]
  72. TUMS [Concomitant]
     Active Substance: CALCIUM CARBONATE
  73. CLARITIN [Concomitant]
     Active Substance: LORATADINE
  74. NYSTATIN AND TRIAMCINOLONE [Concomitant]
     Active Substance: NYSTATIN\TRIAMCINOLONE ACETONIDE
  75. CAMBIA POWDER [Concomitant]

REACTIONS (4)
  - Pain [None]
  - Pyrexia [None]
  - Headache [None]
  - Infusion related reaction [None]

NARRATIVE: CASE EVENT DATE: 20200330
